FAERS Safety Report 6121823-7 (Version None)
Quarter: 2009Q1

REPORT INFORMATION
  Report Type: 
  Country: None (occurrence: None)
  Receive Date: 20090317
  Receipt Date: 20090306
  Transmission Date: 20090719
  Serious: Yes (Death, Hospitalization, Other)
  Sender: FDA-Public Use
  Company Number: NO-WYE-H08571909

PATIENT
  Sex: Male

DRUGS (15)
  1. CORDARONE [Suspect]
     Indication: ATRIAL FIBRILLATION
     Dosage: GRADUALLY REDUCED DOSES
     Route: 048
     Dates: start: 20081215, end: 20081226
  2. ARTHROTEC [Interacting]
     Dosage: UNSPECIFIED
     Route: 048
     Dates: start: 20081224, end: 20081226
  3. WARFARIN SODIUM [Interacting]
     Indication: ATRIAL FIBRILLATION
     Dosage: UNSPECIFIED
     Route: 048
     Dates: start: 20081210, end: 20081223
  4. FRAGMIN [Interacting]
     Indication: ATRIAL FIBRILLATION
     Route: 058
     Dates: start: 20081209, end: 20081222
  5. METFORMIN HCL [Concomitant]
     Dosage: UNSPECIFIED
     Route: 048
  6. SELO-ZOK [Concomitant]
     Dosage: UNSPECIFIED
     Route: 048
  7. BURINEX [Concomitant]
     Dosage: UNSPECIFIED
     Route: 048
  8. AMARYL [Concomitant]
     Indication: TYPE 2 DIABETES MELLITUS
     Dosage: 2 MG DAILY THE FIRST DAYS OF HOSPITAL STAY, THAN 1 MG X 1
     Route: 048
  9. ZYLORIC [Concomitant]
     Route: 048
  10. MONOKET OD [Concomitant]
     Dosage: UNSPECIFIED
     Route: 048
  11. PENICILLIN V POTASSIUM [Concomitant]
  12. KALEORID [Concomitant]
  13. CORDARONE [Interacting]
     Dosage: 300 MG BOLUS
     Route: 042
     Dates: start: 20081211, end: 20081211
  14. CORDARONE [Interacting]
     Dosage: TOTAL OF 1500 MG
     Route: 042
     Dates: start: 20081212, end: 20081214
  15. PREDNISOLONE [Concomitant]
     Indication: RHEUMATOID ARTHRITIS
     Dosage: ALTERNATING 5 AND 10 MG DAILY
     Route: 048

REACTIONS (4)
  - DRUG INTERACTION [None]
  - FALL [None]
  - HAEMORRHAGIC ANAEMIA [None]
  - MYOCARDIAL INFARCTION [None]
